FAERS Safety Report 17403384 (Version 1)
Quarter: 2020Q1

REPORT INFORMATION
  Report Type: Report from Study
  Country: US (occurrence: US)
  Receive Date: 20200211
  Receipt Date: 20200211
  Transmission Date: 20200409
  Serious: Yes (Other)
  Sender: FDA-Public Use
  Company Number: US-DUCHESNAY-2019-US-OSP-00018

PATIENT
  Age: 62 Year
  Sex: Female

DRUGS (7)
  1. NORTRIPTYLINE [Concomitant]
     Active Substance: NORTRIPTYLINE
  2. VITAMINS [Concomitant]
     Active Substance: VITAMINS
  3. OSPEMIFENE [Suspect]
     Active Substance: OSPEMIFENE
     Indication: DYSPAREUNIA
     Dosage: 60 MILLIGRAM, QD
     Route: 048
     Dates: start: 201704, end: 20190204
  4. MELOXICAM. [Concomitant]
     Active Substance: MELOXICAM
  5. DICYCLOMINE [Concomitant]
     Active Substance: DICYCLOMINE HYDROCHLORIDE
  6. ALLERGY MEDICATION [Concomitant]
     Active Substance: DIPHENHYDRAMINE HYDROCHLORIDE
  7. SINGULAIR [Concomitant]
     Active Substance: MONTELUKAST SODIUM

REACTIONS (9)
  - Balance disorder [Recovered/Resolved]
  - Hemiparesis [Recovered/Resolved]
  - Muscle spasms [Not Recovered/Not Resolved]
  - Hot flush [Recovered/Resolved]
  - Vaginal discharge [Recovered/Resolved]
  - Mental impairment [Recovered/Resolved]
  - Hypertension [Recovering/Resolving]
  - Speech disorder [Recovered/Resolved]
  - Pruritus [Not Recovered/Not Resolved]

NARRATIVE: CASE EVENT DATE: 201704
